FAERS Safety Report 24438997 (Version 1)
Quarter: 2024Q4

REPORT INFORMATION
  Report Type: Spontaneous
  Country: US (occurrence: None)
  Receive Date: 20241012
  Receipt Date: 20241012
  Transmission Date: 20250115
  Serious: Yes (Disabling)
  Sender: Public
  Company Number: None

PATIENT
  Age: 54 Year
  Sex: Female
  Weight: 48.15 kg

DRUGS (23)
  1. LEVOFLOXACIN [Suspect]
     Active Substance: LEVOFLOXACIN
     Indication: Bartonellosis
     Dosage: OTHER QUANTITY : 1 TABLET(S);?FREQUENCY : DAILY;?
     Route: 048
     Dates: start: 20200122, end: 20201101
  2. CEFTRIAXONE [Suspect]
     Active Substance: CEFTRIAXONE
  3. LANSOPRAZOLE [Suspect]
     Active Substance: LANSOPRAZOLE
  4. ESTRADIOL [Suspect]
     Active Substance: ESTRADIOL
  5. PROGESTERONE [Suspect]
     Active Substance: PROGESTERONE
  6. VALTREX [Suspect]
     Active Substance: VALACYCLOVIR HYDROCHLORIDE
  7. FLAGYL [Suspect]
     Active Substance: METRONIDAZOLE\METRONIDAZOLE HYDROCHLORIDE
  8. MINOCYCLINE [Suspect]
     Active Substance: MINOCYCLINE HYDROCHLORIDE
  9. DOXYCYCLINE [Suspect]
     Active Substance: DOXYCYCLINE
  10. BACTRIM [Suspect]
     Active Substance: SULFAMETHOXAZOLE\TRIMETHOPRIM
  11. CEFDINIR [Suspect]
     Active Substance: CEFDINIR
  12. SUMATRIPTAN [Suspect]
     Active Substance: SUMATRIPTAN
  13. ONDANSETRON [Suspect]
     Active Substance: ONDANSETRON
  14. HYDROCODONE [Suspect]
     Active Substance: HYDROCODONE
  15. CLARITIN [Suspect]
     Active Substance: LORATADINE
  16. ALLEGRA [Suspect]
     Active Substance: FEXOFENADINE HYDROCHLORIDE
  17. CIPRO [Suspect]
     Active Substance: CIPROFLOXACIN HYDROCHLORIDE
  18. ZINC [Suspect]
     Active Substance: ZINC
  19. MAGNESIUM [Suspect]
     Active Substance: MAGNESIUM
  20. CALCIUM [Suspect]
     Active Substance: CALCIUM
  21. MELATONIN [Suspect]
     Active Substance: MELATONIN
  22. VITAMIN C [Suspect]
     Active Substance: ASCORBIC ACID
  23. VITAMIN D [Suspect]
     Active Substance: VITAMIN D NOS

REACTIONS (11)
  - Neuropathy peripheral [None]
  - Sensory loss [None]
  - Pudendal canal syndrome [None]
  - Neurotoxicity [None]
  - Toxicity to various agents [None]
  - Disability [None]
  - Toxicity to various agents [None]
  - Impaired quality of life [None]
  - Nerve injury [None]
  - Injury [None]
  - Product label issue [None]

NARRATIVE: CASE EVENT DATE: 20200520
